FAERS Safety Report 18180731 (Version 8)
Quarter: 2021Q3

REPORT INFORMATION
  Report Type: Report from Study
  Country: None (occurrence: NL)
  Receive Date: 20200821
  Receipt Date: 20210930
  Transmission Date: 20211014
  Serious: Yes (Hospitalization, Other)
  Sender: FDA-Public Use
  Company Number: NL-ABBVIE-17P-114-1920837-00

PATIENT
  Age: 71 Year
  Sex: Male
  Weight: 62.9 kg

DRUGS (5)
  1. DUODOPA [Suspect]
     Active Substance: CARBIDOPA\LEVODOPA
     Indication: PARKINSON^S DISEASE
     Dosage: MD 7.5 ML, CD 3.0 ML/HR, ED 2.0 M
     Route: 050
     Dates: start: 20100908
  2. DUODOPA [Suspect]
     Active Substance: CARBIDOPA\LEVODOPA
     Dosage: MD 6.5 ML, CD 3.0 ML/HR, ED 2.0 M.REMAINS AT 16 HOURS
     Route: 050
  3. DUODOPA [Suspect]
     Active Substance: CARBIDOPA\LEVODOPA
     Dosage: MD 6.5 ML, CD 3.0 ML/HR, ED 2.0 ML.REMAINS AT 16 HOURS
     Route: 050
  4. MOVICOLON [Concomitant]
     Active Substance: POLYETHYLENE GLYCOL 3350\POTASSIUM CHLORIDE\SODIUM BICARBONATE\SODIUM CHLORIDE
     Indication: ABNORMAL FAECES
     Route: 065
  5. DUODOPA [Suspect]
     Active Substance: CARBIDOPA\LEVODOPA
     Dosage: MD: 6.5 ML, CD: 3.0 ML/H, ED: 2.0 ML
     Route: 050

REACTIONS (43)
  - Feeding disorder [Not Recovered/Not Resolved]
  - Device breakage [Recovered/Resolved]
  - Hypophagia [Unknown]
  - On and off phenomenon [Not Recovered/Not Resolved]
  - Hyperkinesia [Not Recovered/Not Resolved]
  - Stoma site discharge [Recovered/Resolved]
  - Unevaluable event [Not Recovered/Not Resolved]
  - Somnolence [Not Recovered/Not Resolved]
  - Hip fracture [Recovered/Resolved]
  - Memory impairment [Not Recovered/Not Resolved]
  - Joint dislocation [Not Recovered/Not Resolved]
  - Device material issue [Unknown]
  - Thirst [Not Recovered/Not Resolved]
  - Stoma site erythema [Recovered/Resolved]
  - Constipation [Not Recovered/Not Resolved]
  - Confusional state [Not Recovered/Not Resolved]
  - Device issue [Unknown]
  - Device alarm issue [Unknown]
  - Fatigue [Not Recovered/Not Resolved]
  - Dyskinesia [Recovering/Resolving]
  - Cognitive disorder [Not Recovered/Not Resolved]
  - Product administration error [Not Recovered/Not Resolved]
  - Snoring [Recovered/Resolved]
  - Nocturia [Recovering/Resolving]
  - Decreased appetite [Recovered/Resolved]
  - Poor quality sleep [Not Recovered/Not Resolved]
  - Restlessness [Not Recovered/Not Resolved]
  - Device dislocation [Not Recovered/Not Resolved]
  - Weight fluctuation [Not Recovered/Not Resolved]
  - Infrequent bowel movements [Recovered/Resolved]
  - Chorea [Not Recovered/Not Resolved]
  - Device issue [Unknown]
  - Malaise [Not Recovered/Not Resolved]
  - Appetite disorder [Recovered/Resolved]
  - Fall [Not Recovered/Not Resolved]
  - Hypersomnia [Not Recovered/Not Resolved]
  - Intentional medical device removal by patient [Unknown]
  - Device kink [Recovered/Resolved]
  - Abnormal dreams [Recovering/Resolving]
  - Dyskinesia [Recovered/Resolved]
  - Device kink [Not Recovered/Not Resolved]
  - Device leakage [Unknown]
  - Loss of personal independence in daily activities [Unknown]

NARRATIVE: CASE EVENT DATE: 2018
